FAERS Safety Report 9922162 (Version 1)
Quarter: 2014Q1

REPORT INFORMATION
  Report Type: Spontaneous
  Country: US (occurrence: US)
  Receive Date: 20140225
  Receipt Date: 20140225
  Transmission Date: 20141002
  Serious: Yes (Other)
  Sender: FDA-Public Use
  Company Number: US-GLAXOSMITHKLINE-A1062325A

PATIENT
  Age: 36 Year
  Sex: Female

DRUGS (8)
  1. BENLYSTA [Suspect]
     Indication: SYSTEMIC LUPUS ERYTHEMATOSUS
     Route: 042
     Dates: start: 201205
  2. LEVOTHYROXINE [Concomitant]
  3. TRAMADOL [Concomitant]
  4. PLAQUENIL [Concomitant]
  5. CELEBREX [Concomitant]
  6. CYMBALTA [Concomitant]
  7. KLONOPIN [Concomitant]
  8. AUGMENTIN [Concomitant]

REACTIONS (3)
  - Wound abscess [Unknown]
  - Animal bite [Not Recovered/Not Resolved]
  - Purulent discharge [Unknown]
